FAERS Safety Report 5734532-0 (Version None)
Quarter: 2008Q2

REPORT INFORMATION
  Report Type: 
  Country: None (occurrence: None)
  Receive Date: 20080508
  Receipt Date: 20080501
  Transmission Date: 20081010
  Serious: Yes (Other)
  Sender: FDA-Public Use
  Company Number: 163-21880-08021758

PATIENT
  Age: 68 Year
  Sex: Male

DRUGS (8)
  1. REVLIMID [Suspect]
     Indication: MULTIPLE MYELOMA
     Dosage: 5 MG, DAILY X 21 DAYS, ORAL; 10 MG, 1 IN 1 D, ORAL; 15  MG, 1 IN 1 D, ORAL; 25 MG, 1 IN 1 D,  ORAL;
     Route: 048
     Dates: start: 20070108, end: 20070101
  2. REVLIMID [Suspect]
     Indication: MULTIPLE MYELOMA
     Dosage: 5 MG, DAILY X 21 DAYS, ORAL; 10 MG, 1 IN 1 D, ORAL; 15  MG, 1 IN 1 D, ORAL; 25 MG, 1 IN 1 D,  ORAL;
     Route: 048
     Dates: start: 20070717, end: 20070101
  3. REVLIMID [Suspect]
     Indication: MULTIPLE MYELOMA
     Dosage: 5 MG, DAILY X 21 DAYS, ORAL; 10 MG, 1 IN 1 D, ORAL; 15  MG, 1 IN 1 D, ORAL; 25 MG, 1 IN 1 D,  ORAL;
     Route: 048
     Dates: start: 20071004, end: 20070101
  4. REVLIMID [Suspect]
     Indication: MULTIPLE MYELOMA
     Dosage: 5 MG, DAILY X 21 DAYS, ORAL; 10 MG, 1 IN 1 D, ORAL; 15  MG, 1 IN 1 D, ORAL; 25 MG, 1 IN 1 D,  ORAL;
     Route: 048
     Dates: start: 20070102
  5. REVLIMID [Suspect]
     Indication: MULTIPLE MYELOMA
     Dosage: 5 MG, DAILY X 21 DAYS, ORAL; 10 MG, 1 IN 1 D, ORAL; 15  MG, 1 IN 1 D, ORAL; 25 MG, 1 IN 1 D,  ORAL;
     Route: 048
     Dates: start: 20071031
  6. WARFARIN SODIUM [Concomitant]
  7. ASPIRIN [Concomitant]
  8. DECADRON [Concomitant]

REACTIONS (8)
  - CONSTIPATION [None]
  - MUSCLE ATROPHY [None]
  - MUSCULAR WEAKNESS [None]
  - NEUROPATHY PERIPHERAL [None]
  - NEUTROPENIA [None]
  - RENAL OSTEODYSTROPHY [None]
  - T-CELL LYMPHOMA [None]
  - WEIGHT DECREASED [None]
